FAERS Safety Report 25829726 (Version 1)
Quarter: 2025Q3

REPORT INFORMATION
  Report Type: Spontaneous
  Country: JP (occurrence: JP)
  Receive Date: 20250922
  Receipt Date: 20250922
  Transmission Date: 20251021
  Serious: Yes (Hospitalization, Other)
  Sender: ACCORD
  Company Number: JP-Accord-505623

PATIENT
  Age: 87 Year
  Sex: Male

DRUGS (4)
  1. APIXABAN [Suspect]
     Active Substance: APIXABAN
     Indication: Atrial fibrillation
  2. DEXAMETHASONE [Concomitant]
     Active Substance: DEXAMETHASONE
     Indication: COVID-19
  3. LIMAPROST [Concomitant]
     Active Substance: LIMAPROST
     Indication: Atrial fibrillation
  4. REMDESIVIR [Concomitant]
     Active Substance: REMDESIVIR
     Indication: COVID-19

REACTIONS (3)
  - Haemorrhagic cholecystitis [Recovered/Resolved]
  - Gallbladder rupture [Recovered/Resolved]
  - Acute cholecystitis necrotic [Recovered/Resolved]
